FAERS Safety Report 21854356 (Version 1)
Quarter: 2023Q1

REPORT INFORMATION
  Report Type: Spontaneous
  Country: US (occurrence: None)
  Receive Date: 20230111
  Receipt Date: 20230111
  Transmission Date: 20230418
  Serious: Yes (Disabling, Other)
  Sender: FDA-Public Use
  Company Number: None

PATIENT
  Age: 67 Year
  Sex: Male
  Weight: 93.15 kg

DRUGS (14)
  1. FLUTICASONE PROPIONATE\SALMETEROL XINAFOATE [Suspect]
     Active Substance: FLUTICASONE PROPIONATE\SALMETEROL XINAFOATE
     Indication: Chronic obstructive pulmonary disease
     Dosage: OTHER STRENGTH : MCG;?OTHER QUANTITY : 60 INHALATION(S);?FREQUENCY : EVERY 12 HOURS;?
     Route: 055
     Dates: start: 20221214, end: 20230105
  2. QVAR REDIHALER [Concomitant]
     Active Substance: BECLOMETHASONE DIPROPIONATE
  3. ROSUVASTATIN [Concomitant]
     Active Substance: ROSUVASTATIN
  4. ALLOPURINOL [Concomitant]
     Active Substance: ALLOPURINOL
  5. LISINOPRIL [Concomitant]
     Active Substance: LISINOPRIL
  6. Isosorbide Mon0nitrate [Concomitant]
  7. NITROGLYCERIN [Concomitant]
     Active Substance: NITROGLYCERIN
  8. CARVEDILOL [Concomitant]
     Active Substance: CARVEDILOL
  9. EZETIMIBE [Concomitant]
     Active Substance: EZETIMIBE
  10. Aged Garlic [Concomitant]
  11. ASCORBIC ACID [Concomitant]
     Active Substance: ASCORBIC ACID
  12. ZINC [Concomitant]
     Active Substance: ZINC
  13. VITAMIN D [Concomitant]
     Active Substance: VITAMIN D NOS
  14. VITAMIN B12 [Concomitant]
     Active Substance: CYANOCOBALAMIN

REACTIONS (4)
  - Regurgitation [None]
  - Laryngeal ulceration [None]
  - Pharyngeal ulceration [None]
  - Pain [None]

NARRATIVE: CASE EVENT DATE: 20230105
